FAERS Safety Report 20653835 (Version 1)
Quarter: 2022Q1

REPORT INFORMATION
  Report Type: Spontaneous
  Country: US (occurrence: None)
  Receive Date: 20220329
  Receipt Date: 20220329
  Transmission Date: 20220423
  Serious: No
  Sender: FDA-Public Use
  Company Number: None

PATIENT
  Age: 30 Year
  Sex: Male
  Weight: 65.25 kg

DRUGS (4)
  1. DOXYCYCLINE HYCLATE [Suspect]
     Active Substance: DOXYCYCLINE HYCLATE
     Indication: Chlamydial infection
     Dosage: OTHER QUANTITY : 20 CAPSULE(S);?FREQUENCY : TWICE A DAY;?
     Route: 048
     Dates: start: 20220321, end: 20220329
  2. TRUVADA [Concomitant]
     Active Substance: EMTRICITABINE\TENOFOVIR DISOPROXIL FUMARATE
  3. LIDOCAINE [Concomitant]
  4. DAILY MULTIVITAMIN SUPPLEMENT [Concomitant]

REACTIONS (8)
  - Aphthous ulcer [None]
  - Tongue ulceration [None]
  - Glossodynia [None]
  - Odynophagia [None]
  - Oral candidiasis [None]
  - Tongue discolouration [None]
  - Glossodynia [None]
  - Taste disorder [None]

NARRATIVE: CASE EVENT DATE: 20220323
